FAERS Safety Report 23884418 (Version 2)
Quarter: 2024Q2

REPORT INFORMATION
  Report Type: Report from Study
  Country: US (occurrence: US)
  Receive Date: 20240522
  Receipt Date: 20240523
  Transmission Date: 20240716
  Serious: Yes (Other)
  Sender: FDA-Public Use
  Company Number: US-ABBVIE-5762729

PATIENT
  Age: 43 Year
  Sex: Female

DRUGS (3)
  1. ORILISSA [Suspect]
     Active Substance: ELAGOLIX SODIUM
     Indication: Endometriosis
     Dosage: UNKNOWN
     Route: 048
     Dates: start: 20240501, end: 20240515
  2. ADVIL [Concomitant]
     Active Substance: IBUPROFEN
     Indication: Headache
  3. BENADRYL [Concomitant]
     Active Substance: DIPHENHYDRAMINE HYDROCHLORIDE
     Indication: Headache

REACTIONS (7)
  - Blindness unilateral [Not Recovered/Not Resolved]
  - Eye pain [Not Recovered/Not Resolved]
  - Stress [Unknown]
  - Dysgeusia [Unknown]
  - Retinal migraine [Not Recovered/Not Resolved]
  - Nausea [Unknown]
  - Headache [Not Recovered/Not Resolved]

NARRATIVE: CASE EVENT DATE: 20240501
